FAERS Safety Report 14963063 (Version 1)
Quarter: 2018Q2

REPORT INFORMATION
  Report Type: Spontaneous
  Country: US (occurrence: US)
  Receive Date: 20180510
  Receipt Date: 20180510
  Transmission Date: 20180711
  Serious: Yes (Hospitalization, Disabling, Other)
  Sender: FDA-Public Use
  Company Number: None

PATIENT
  Age: 39 Year
  Sex: Female
  Weight: 86.18 kg

DRUGS (7)
  1. KLONOPIN [Concomitant]
     Active Substance: CLONAZEPAM
  2. MIRENA [Suspect]
     Active Substance: LEVONORGESTREL
  3. METHOCARBIMOL [Concomitant]
  4. TYLENOL WITH CODEINE [Concomitant]
     Active Substance: ACETAMINOPHEN\CODEINE PHOSPHATE
  5. TRAMADOL. [Concomitant]
     Active Substance: TRAMADOL
  6. TRAMADOL. [Concomitant]
     Active Substance: TRAMADOL
  7. DAILY VITAMINS [Concomitant]

REACTIONS (9)
  - Migraine [None]
  - Abdominal distension [None]
  - Fungal infection [None]
  - Complication associated with device [None]
  - Vaginal haemorrhage [None]
  - Urine odour abnormal [None]
  - Dyspareunia [None]
  - Pelvic pain [None]
  - Weight increased [None]

NARRATIVE: CASE EVENT DATE: 20160801
